FAERS Safety Report 6816704-7 (Version None)
Quarter: 2010Q3

REPORT INFORMATION
  Report Type: 
  Country: None (occurrence: None)
  Receive Date: 20100706
  Receipt Date: 20100625
  Transmission Date: 20110219
  Serious: Yes (Other)
  Sender: FDA-Public Use
  Company Number: US-JNJFOC-20100700076

PATIENT
  Sex: Female
  Weight: 81.19 kg

DRUGS (8)
  1. DURAGESIC-100 [Suspect]
     Indication: FIBROMYALGIA
     Dosage: ONCE EVERY 72 HOURS
     Route: 062
  2. DURAGESIC-100 [Suspect]
     Dosage: ONCE EVERY 72 HOURS. NDC 50458-094-05
     Route: 062
  3. TRAMADOL HCL [Concomitant]
     Indication: FIBROMYALGIA
     Dosage: TWICE A DAY
     Route: 048
  4. TRAMADOL HCL [Concomitant]
     Indication: PAIN
     Dosage: TWICE A DAY
     Route: 048
  5. PERCOCET [Concomitant]
     Indication: PAIN
     Route: 048
  6. PRISTIQ [Concomitant]
     Indication: DEPRESSION
     Route: 048
  7. KLONOPIN [Concomitant]
     Indication: STRESS
     Route: 048
  8. ACTONEL [Concomitant]
     Indication: OSTEOPOROSIS
     Route: 048

REACTIONS (6)
  - CHRONIC OBSTRUCTIVE PULMONARY DISEASE [None]
  - DYSGEUSIA [None]
  - PARKINSON'S DISEASE [None]
  - PAROSMIA [None]
  - PRODUCT QUALITY ISSUE [None]
  - WITHDRAWAL SYNDROME [None]
